FAERS Safety Report 12251907 (Version 2)
Quarter: 2016Q2

REPORT INFORMATION
  Report Type: Spontaneous
  Country: US (occurrence: US)
  Receive Date: 20160411
  Receipt Date: 20160505
  Transmission Date: 20160815
  Serious: Yes (Death, Hospitalization)
  Sender: FDA-Public Use
  Company Number: US-PFIZER INC-2016186985

PATIENT
  Age: 69 Year
  Sex: Female

DRUGS (2)
  1. IBRANCE [Suspect]
     Active Substance: PALBOCICLIB
     Indication: BREAST CANCER
     Dosage: DAILY X 21 DAYS, THEN 7 DAYS OFF
     Route: 048
     Dates: start: 20160201, end: 20160328
  2. FULVESTRANT [Suspect]
     Active Substance: FULVESTRANT
     Dosage: UNK

REACTIONS (7)
  - Memory impairment [Unknown]
  - Confusional state [Unknown]
  - Breast cancer [Fatal]
  - Asthenia [Unknown]
  - Disease progression [Fatal]
  - Weight decreased [Unknown]
  - Blood bilirubin increased [Unknown]
